FAERS Safety Report 18319771 (Version 5)
Quarter: 2021Q1

REPORT INFORMATION
  Report Type: Spontaneous
  Country: US (occurrence: US)
  Receive Date: 20200928
  Receipt Date: 20210107
  Transmission Date: 20210419
  Serious: Yes (Death)
  Sender: FDA-Public Use
  Company Number: US-CELGENEUS-USA-20200906912

PATIENT
  Sex: Male

DRUGS (3)
  1. THALOMID [Suspect]
     Active Substance: THALIDOMIDE
     Dosage: 100 MILLIGRAM
     Route: 048
     Dates: start: 202003
  2. THALOMID [Suspect]
     Active Substance: THALIDOMIDE
     Indication: PLASMA CELL MYELOMA
     Dosage: 100 MILLIGRAM
     Route: 048
     Dates: start: 201907
  3. THALOMID [Suspect]
     Active Substance: THALIDOMIDE
     Dosage: 100 MILLIGRAM
     Route: 048
     Dates: start: 20190802

REACTIONS (1)
  - Respiratory failure [Fatal]
